FAERS Safety Report 17044409 (Version 1)
Quarter: 2019Q4

REPORT INFORMATION
  Report Type: Spontaneous
  Country: GB (occurrence: GB)
  Receive Date: 20191118
  Receipt Date: 20191118
  Transmission Date: 20200122
  Serious: Yes (Other)
  Sender: FDA-Public Use
  Company Number: GB-PFIZER INC-2019492901

PATIENT
  Age: 67 Year
  Sex: Male
  Weight: 92.8 kg

DRUGS (9)
  1. GEMCITABINE HYDROCHLORIDE. [Suspect]
     Active Substance: GEMCITABINE HYDROCHLORIDE
     Indication: PANCREATIC CARCINOMA METASTATIC
     Dosage: 1672 MG, UNK C(YCLE 1 (80% DOSE)
     Route: 042
     Dates: start: 20180524, end: 20180524
  2. PACLITAXEL. [Concomitant]
     Active Substance: PACLITAXEL
     Dosage: 205 MG, UNK (CYCLE 1 (80% DOSE)
     Route: 042
     Dates: start: 20180524, end: 20180524
  3. CREON [Concomitant]
     Active Substance: PANCRELIPASE AMYLASE\PANCRELIPASE LIPASE\PANCRELIPASE PROTEASE
     Dosage: UNK
  4. LAXIDO [Concomitant]
     Active Substance: POLYETHYLENE GLYCOL 3350\POTASSIUM CHLORIDE\SODIUM BICARBONATE\SODIUM CHLORIDE
     Dosage: UNK
  5. GEMCITABINE HYDROCHLORIDE. [Suspect]
     Active Substance: GEMCITABINE HYDROCHLORIDE
     Dosage: 1672 MG, UNK (CYCLE 2 (80% DOSE)
     Route: 042
     Dates: start: 20180620, end: 20180620
  6. PACLITAXEL. [Concomitant]
     Active Substance: PACLITAXEL
     Dosage: 205 MG, UNK (CYCLE 2 (80% DOSE)
     Route: 042
     Dates: start: 20180620, end: 20180620
  7. COCODAMOL [Concomitant]
     Active Substance: ACETAMINOPHEN\CODEINE PHOSPHATE
     Dosage: UNK
  8. SIMVASTATIN. [Concomitant]
     Active Substance: SIMVASTATIN
     Dosage: UNK
  9. ORAMORPH SR SUSTAINED RELEASE [Concomitant]
     Active Substance: MORPHINE SULFATE
     Dosage: UNK

REACTIONS (6)
  - Skin warm [Recovered/Resolved]
  - Post thrombotic syndrome [Recovered/Resolved]
  - Erythema [Recovered/Resolved]
  - Pain of skin [Recovered/Resolved]
  - Pruritus [Recovered/Resolved]
  - Cellulitis [Recovered/Resolved]

NARRATIVE: CASE EVENT DATE: 20180627
